FAERS Safety Report 25977206 (Version 1)
Quarter: 2025Q4

REPORT INFORMATION
  Report Type: Spontaneous
  Country: US (occurrence: US)
  Receive Date: 20251030
  Receipt Date: 20251030
  Transmission Date: 20260117
  Serious: No
  Sender: ALMUS
  Company Number: US-ALMIRALL-US-2025-3854

PATIENT
  Sex: Female

DRUGS (1)
  1. KLISYRI [Suspect]
     Active Substance: TIRBANIBULIN
     Dates: start: 20251015, end: 20251019

REACTIONS (3)
  - Erythema [Unknown]
  - Hot flush [Unknown]
  - Rash pruritic [Unknown]
